FAERS Safety Report 22705872 (Version 3)
Quarter: 2024Q3

REPORT INFORMATION
  Report Type: Spontaneous
  Country: BE (occurrence: FR)
  Receive Date: 20230714
  Receipt Date: 20240911
  Transmission Date: 20241016
  Serious: Yes (Hospitalization, Other)
  Sender: BLUEPRINT MEDICINES
  Company Number: BE-Blueprint Medicines Corporation-SO-BE-2023-001082

PATIENT
  Age: 60 Year
  Sex: Male

DRUGS (9)
  1. AVAPRITINIB [Suspect]
     Active Substance: AVAPRITINIB
     Indication: Systemic mastocytosis
     Route: 048
     Dates: start: 20211005, end: 20230706
  2. AVAPRITINIB [Suspect]
     Active Substance: AVAPRITINIB
     Route: 048
     Dates: start: 20230716
  3. AVAPRITINIB [Suspect]
     Active Substance: AVAPRITINIB
     Route: 048
     Dates: start: 20211005, end: 20211130
  4. AVAPRITINIB [Suspect]
     Active Substance: AVAPRITINIB
     Route: 048
     Dates: start: 20211208
  5. BILASTINE [Concomitant]
     Active Substance: BILASTINE
     Indication: Product used for unknown indication
     Route: 048
  6. TAMSULOSIN [Concomitant]
     Active Substance: TAMSULOSIN
     Indication: Benign prostatic hyperplasia
     Route: 048
  7. VITAMIN D3 [Concomitant]
     Active Substance: CHOLECALCIFEROL
     Indication: Vitamin supplementation
     Dosage: 800IU (20UG)
     Route: 048
     Dates: start: 202406
  8. NICOTINE TRANSDERMAL SYSTEM [Concomitant]
     Active Substance: NICOTINE
     Indication: Ex-tobacco user
     Route: 061
     Dates: start: 202312
  9. LOPERAMIDE [Concomitant]
     Active Substance: LOPERAMIDE
     Indication: Product used for unknown indication
     Route: 065
     Dates: start: 20240605

REACTIONS (6)
  - Colitis [Recovered/Resolved]
  - Pruritus [Unknown]
  - Fatigue [Unknown]
  - Insomnia [Unknown]
  - Headache [Unknown]
  - Dental caries [Unknown]

NARRATIVE: CASE EVENT DATE: 20230307
